FAERS Safety Report 5208951-5 (Version None)
Quarter: 2007Q1

REPORT INFORMATION
  Report Type: 
  Country: None (occurrence: None)
  Receive Date: 20070111
  Receipt Date: 20070111
  Transmission Date: 20070707
  Serious: Yes (Death)
  Sender: FDA-Public Use
  Company Number: None

PATIENT
  Age: 58 Year
  Sex: Male
  Weight: 104.3273 kg

DRUGS (2)
  1. CELEBREX [Suspect]
     Indication: ARTHRALGIA
     Dosage: 200 MG TWICE DAY
     Dates: start: 20040317, end: 20041214
  2. CELEBREX [Suspect]
     Indication: ARTHRALGIA
     Dosage: 200 MG TWICE DAY
     Dates: start: 20050706, end: 20050823

REACTIONS (1)
  - HEPATIC FAILURE [None]
